FAERS Safety Report 7064460-2 (Version None)
Quarter: 2010Q4

REPORT INFORMATION
  Report Type: 
  Country: None (occurrence: None)
  Receive Date: 20101027
  Receipt Date: 20101014
  Transmission Date: 20110411
  Serious: Yes (Other)
  Sender: FDA-Public Use
  Company Number: BR-PFIZER INC-2010127517

PATIENT
  Sex: Male

DRUGS (2)
  1. FRONTAL [Suspect]
     Dosage: 0.5 MG, UNK
     Route: 048
     Dates: start: 20100201
  2. FRONTAL [Suspect]
     Dosage: 1 MG, UNK

REACTIONS (8)
  - DRUG INEFFECTIVE [None]
  - INFARCTION [None]
  - LABYRINTHITIS [None]
  - MALAISE [None]
  - MYOCARDIAL INFARCTION [None]
  - NAUSEA [None]
  - PANIC ATTACK [None]
  - PRODUCT SUBSTITUTION ISSUE [None]
